FAERS Safety Report 22238662 (Version 1)
Quarter: 2023Q2

REPORT INFORMATION
  Report Type: Spontaneous
  Country: US (occurrence: US)
  Receive Date: 20230421
  Receipt Date: 20230421
  Transmission Date: 20230722
  Serious: No
  Sender: FDA-Public Use
  Company Number: US-UNITED THERAPEUTICS-UNT-2023-010900

PATIENT
  Age: 53 Year
  Sex: Female
  Weight: 80.726 kg

DRUGS (3)
  1. REMODULIN [Suspect]
     Active Substance: TREPROSTINIL
     Indication: Pulmonary arterial hypertension
     Dosage: 0.040 ?G/KG (PUMP RATE 0.036 ML PER HOUR), CONTINUING
     Route: 058
     Dates: end: 202304
  2. REMODULIN [Suspect]
     Active Substance: TREPROSTINIL
     Dosage: UNK, CONTINUING
     Route: 058
     Dates: start: 20211013
  3. REMODULIN [Suspect]
     Active Substance: TREPROSTINIL
     Dosage: 0.040 ?G/KG (PUMP RATE 0.036 ML PER HOUR), CONTINUING
     Route: 058
     Dates: start: 20230414

REACTIONS (4)
  - Nausea [Unknown]
  - Vomiting [Unknown]
  - Device use error [Recovered/Resolved]
  - Device information output issue [Unknown]

NARRATIVE: CASE EVENT DATE: 20230401
